FAERS Safety Report 6036516-4 (Version None)
Quarter: 2009Q1

REPORT INFORMATION
  Report Type: 
  Country: None (occurrence: None)
  Receive Date: 20090114
  Receipt Date: 20090108
  Transmission Date: 20090719
  Serious: Yes (Disabling, Other)
  Sender: FDA-Public Use
  Company Number: JP-ASTRAZENECA-2009AP00423

PATIENT
  Age: 60 Year
  Sex: Male

DRUGS (3)
  1. CRESTOR [Suspect]
     Indication: HYPERCHOLESTEROLAEMIA
     Route: 048
  2. RADICUT [Suspect]
     Dosage: DOSE UNKNOWN
     Route: 042
  3. PLAVIX [Suspect]
     Dosage: DOSE UNKNOWN
     Route: 048

REACTIONS (3)
  - DYSPHAGIA [None]
  - HYPERGLYCAEMIA [None]
  - RENAL FAILURE ACUTE [None]
